FAERS Safety Report 24018767 (Version 1)
Quarter: 2024Q2

REPORT INFORMATION
  Report Type: Spontaneous
  Country: CN (occurrence: CN)
  Receive Date: 20240627
  Receipt Date: 20240627
  Transmission Date: 20240716
  Serious: Yes (Other)
  Sender: FDA-Public Use
  Company Number: None

PATIENT
  Age: 51 Year
  Sex: Female
  Weight: 62 kg

DRUGS (4)
  1. CYCLOPHOSPHAMIDE [Suspect]
     Active Substance: CYCLOPHOSPHAMIDE
     Indication: Breast cancer female
     Dosage: 0.95 G, ONE TIME IN ONE DAY, ST, DILUTED WITH 100 ML OF SODIUM CHLORIDE, AS A PART OF AC CHEMOTHERAP
     Route: 041
     Dates: start: 20240522, end: 20240522
  2. SODIUM CHLORIDE [Suspect]
     Active Substance: SODIUM CHLORIDE
     Indication: Medication dilution
     Dosage: 100 ML, ONE TIME IN ONE DAY, ST, USED TO DILUTE 0.95 G OF CYCLOPHOSPHAMIDE
     Route: 041
     Dates: start: 20240522, end: 20240522
  3. SODIUM CHLORIDE [Suspect]
     Active Substance: SODIUM CHLORIDE
     Dosage: 100 ML, ST, USED TO DILUTE 150 MG OF EPIRUBICIN
     Route: 041
     Dates: start: 20240522, end: 20240522
  4. EPIRUBICIN [Suspect]
     Active Substance: EPIRUBICIN
     Indication: Breast cancer female
     Dosage: 150 MG, ST, DILUTED WITH 100 ML OF SODIUM CHLORIDE, AS A PART OF AC CHEMOTHERAPY
     Route: 041
     Dates: start: 20240522, end: 20240522

REACTIONS (1)
  - Myelosuppression [Recovering/Resolving]

NARRATIVE: CASE EVENT DATE: 20240605
